FAERS Safety Report 23812568 (Version 1)
Quarter: 2024Q2

REPORT INFORMATION
  Report Type: Report from Study
  Country: CA (occurrence: CA)
  Receive Date: 20240503
  Receipt Date: 20240503
  Transmission Date: 20240716
  Serious: Yes (Hospitalization)
  Sender: FDA-Public Use
  Company Number: CA-CELLTRION INC.-2023CA016126

PATIENT

DRUGS (6)
  1. INFLIXIMAB [Suspect]
     Active Substance: INFLIXIMAB
     Indication: Rheumatoid arthritis
     Dosage: 120 MILLIGRAM PER MILLILITRE, Q2WEEKS
     Route: 058
     Dates: start: 20220610
  2. INFLIXIMAB [Suspect]
     Active Substance: INFLIXIMAB
     Dosage: 120 MILLIGRAM PER MILLILITRE; FORGOT TO TAKE IT ON MONDAY, SO TOOK IT YESTERDAY INSTEAD
     Route: 058
     Dates: start: 20230810
  3. HYDROMORPHONE [Concomitant]
     Active Substance: HYDROMORPHONE
     Indication: Back pain
     Dosage: WILL BE INCREASED NEXT WEEK DUE TO LOWER BACK PAIN WORSENING
  4. PROLIA [Concomitant]
     Active Substance: DENOSUMAB
     Dosage: EVERY SIX MONTHS
  5. PLAQUENIL [Concomitant]
     Active Substance: HYDROXYCHLOROQUINE SULFATE
     Dosage: 400 MG
     Route: 065
     Dates: start: 2016
  6. PLAQUENIL [Concomitant]
     Active Substance: HYDROXYCHLOROQUINE SULFATE
     Dosage: 200 MG TWICE A DAY

REACTIONS (6)
  - Hospitalisation [Unknown]
  - Musculoskeletal stiffness [Recovering/Resolving]
  - Back pain [Not Recovered/Not Resolved]
  - Pain [Recovering/Resolving]
  - Therapeutic product effect incomplete [Unknown]
  - Inappropriate schedule of product administration [Unknown]
